FAERS Safety Report 10036712 (Version 2)
Quarter: 2014Q2

REPORT INFORMATION
  Report Type: Spontaneous
  Country: JP (occurrence: JP)
  Receive Date: 20140326
  Receipt Date: 20140527
  Transmission Date: 20141212
  Serious: Yes (Hospitalization)
  Sender: FDA-Public Use
  Company Number: JP-ROCHE-1367959

PATIENT
  Age: 73 Year
  Sex: Female
  Weight: 46 kg

DRUGS (9)
  1. AVASTIN [Suspect]
     Indication: GLIOBLASTOMA
     Dosage: COMPLETED TREATMENT CYCLE NUMBER : 3
     Route: 041
     Dates: start: 20131119, end: 20131217
  2. TEMODAL [Concomitant]
     Indication: GLIOBLASTOMA
     Route: 065
     Dates: start: 20131112, end: 20131223
  3. DEPAKENE [Concomitant]
     Indication: CONVULSION
     Route: 048
  4. AROTINOLOL HYDROCHLORIDE [Concomitant]
     Indication: HYPERTENSION
     Route: 048
  5. CILOSTAZOL [Concomitant]
     Indication: PLATELET AGGREGATION INHIBITION
     Route: 048
  6. RINDERON [Concomitant]
     Indication: BRAIN OEDEMA
     Route: 065
  7. TAKEPRON [Concomitant]
     Indication: PROPHYLAXIS AGAINST GASTROINTESTINAL ULCER
     Route: 048
  8. ADOAIR [Concomitant]
     Indication: ASTHMA
     Route: 055
  9. WARFARIN [Concomitant]
     Indication: THROMBOSIS PROPHYLAXIS
     Route: 048

REACTIONS (2)
  - Interstitial lung disease [Recovering/Resolving]
  - Pulmonary fibrosis [Recovering/Resolving]
